FAERS Safety Report 15223564 (Version 6)
Quarter: 2019Q1

REPORT INFORMATION
  Report Type: Report from Study
  Country: US (occurrence: US)
  Receive Date: 20180731
  Receipt Date: 20190102
  Transmission Date: 20190417
  Serious: Yes (Hospitalization, Other)
  Sender: FDA-Public Use
  Company Number: US-BIOGEN-2018BI00615099

PATIENT
  Sex: Female

DRUGS (1)
  1. TYSABRI [Suspect]
     Active Substance: NATALIZUMAB
     Indication: MULTIPLE SCLEROSIS
     Route: 065
     Dates: start: 20180111

REACTIONS (9)
  - Incision site ulcer [Unknown]
  - Back pain [Unknown]
  - Internal haemorrhage [Unknown]
  - Anaemia [Unknown]
  - Post procedural complication [Unknown]
  - Haematemesis [Unknown]
  - Incision site haemorrhage [Unknown]
  - Arthralgia [Unknown]
  - Intestinal obstruction [Unknown]
